FAERS Safety Report 7707513-5 (Version None)
Quarter: 2011Q3

REPORT INFORMATION
  Report Type: 
  Country: None (occurrence: None)
  Receive Date: 20110824
  Receipt Date: 20110818
  Transmission Date: 20111222
  Serious: Yes (Other)
  Sender: FDA-Public Use
  Company Number: US-BAYER-US-2007-018851

PATIENT
  Age: 42 Year
  Sex: Female
  Weight: 72.562 kg

DRUGS (2)
  1. BETASERON [Suspect]
     Indication: RELAPSING-REMITTING MULTIPLE SCLEROSIS
     Dosage: 8 MIU, EVERY 2D
     Route: 058
     Dates: start: 20060821
  2. VESICARE [Concomitant]
     Dosage: UNK, UNK
     Route: 048
     Dates: start: 20050101

REACTIONS (7)
  - CHILLS [None]
  - HEADACHE [None]
  - INJECTION SITE ABSCESS [None]
  - PYREXIA [None]
  - PAIN [None]
  - ASTHENIA [None]
  - MALIGNANT MELANOMA [None]
